FAERS Safety Report 8499505-6 (Version None)
Quarter: 2012Q2

REPORT INFORMATION
  Report Type: 
  Country: None (occurrence: None)
  Receive Date: 20120628
  Receipt Date: 20120611
  Transmission Date: 20120825
  Serious: Yes (Hospitalization, Disabling, Other)
  Sender: FDA-Public Use
  Company Number: 2012P1040963

PATIENT
  Age: 45 Year
  Sex: Male

DRUGS (4)
  1. PREDNISOLONE [Suspect]
     Indication: HYPERSENSITIVITY
     Dosage: ;PO
     Route: 048
  2. METHYLPREDNISOLONE [Suspect]
     Dosage: 1 GM;X1;IV
     Route: 042
  3. DIPHENHYDRAIIINE [Concomitant]
  4. EPINEPHRINE [Concomitant]

REACTIONS (9)
  - ARTERIOVENOUS FISTULA [None]
  - PARAPLEGIA [None]
  - SEXUAL DYSFUNCTION [None]
  - URINARY RETENTION [None]
  - SPINAL OSTEOARTHRITIS [None]
  - CONSTIPATION [None]
  - RADICULOPATHY [None]
  - MYELOPATHY [None]
  - DURAL FISTULA [None]
